FAERS Safety Report 17509971 (Version 1)
Quarter: 2020Q1

REPORT INFORMATION
  Report Type: Spontaneous
  Country: US (occurrence: US)
  Receive Date: 20200226
  Receipt Date: 20200226
  Transmission Date: 20200409
  Serious: No
  Sender: FDA-Public Use
  Company Number: None

PATIENT
  Age: 50 Year
  Sex: Female

DRUGS (1)
  1. ENBREL [Suspect]
     Active Substance: ETANERCEPT
     Indication: RHEUMATOID ARTHRITIS
     Dosage: ?          OTHER FREQUENCY:EVERY7DAYS ;?
     Route: 058
     Dates: start: 20191227, end: 20200208

REACTIONS (7)
  - Atrial fibrillation [None]
  - Hypotension [None]
  - Therapy cessation [None]
  - Chest pain [None]
  - Blood pressure increased [None]
  - Headache [None]
  - Loss of consciousness [None]

NARRATIVE: CASE EVENT DATE: 20200119
